FAERS Safety Report 4294247-5 (Version None)
Quarter: 2004Q1

REPORT INFORMATION
  Report Type: 
  Country: None (occurrence: None)
  Receive Date: 20040211
  Receipt Date: 20021211
  Transmission Date: 20041129
  Serious: No
  Sender: FDA-Public Use
  Company Number: US-BRISTOL-MYERS SQUIBB COMPANY-12134870

PATIENT
  Age: 66 Year
  Sex: Female

DRUGS (6)
  1. ULTRAVATE [Suspect]
     Indication: RASH PRURITIC
     Route: 061
     Dates: start: 20021210, end: 20021210
  2. PROVENTIL [Concomitant]
  3. SYNTHROID [Concomitant]
  4. MULTI-VITAMIN [Concomitant]
  5. CALCIUM [Concomitant]
  6. VITAMIN C [Concomitant]

REACTIONS (1)
  - SKIN DISCOLOURATION [None]
